FAERS Safety Report 18393013 (Version 2)
Quarter: 2020Q4

REPORT INFORMATION
  Report Type: Spontaneous
  Country: AU (occurrence: AU)
  Receive Date: 20201016
  Receipt Date: 20201026
  Transmission Date: 20210114
  Serious: Yes (Other)
  Sender: FDA-Public Use
  Company Number: AU-PFIZER INC-2020398815

PATIENT
  Age: 69 Year
  Sex: Male

DRUGS (13)
  1. TENORMIN [Suspect]
     Active Substance: ATENOLOL
     Dosage: UNK
     Route: 065
  2. DIABEX [Suspect]
     Active Substance: METFORMIN HYDROCHLORIDE
     Dosage: 500 MILLIGRAM
     Route: 065
  3. DIAMICRON MR [Suspect]
     Active Substance: GLICLAZIDE
     Dosage: 60 MILLIGRAM
     Route: 048
  4. COVERSYL [PERINDOPRIL ERBUMINE] [Suspect]
     Active Substance: PERINDOPRIL ERBUMINE
     Dosage: 10 MILLIGRAM
     Route: 048
  5. CALTRATE [Suspect]
     Active Substance: CALCIUM CARBONATE
     Dosage: UNK
  6. HYDRALAZINE HYDROCHLORIDE. [Suspect]
     Active Substance: HYDRALAZINE HYDROCHLORIDE
     Dosage: 50 MILLIGRAM
     Route: 065
  7. ALPHAPRESS [HYDRALAZINE HYDROCHLORIDE] [Suspect]
     Active Substance: HYDRALAZINE HYDROCHLORIDE
     Dosage: 50 MILLIGRAM
     Route: 065
  8. NATRILIX SR [Suspect]
     Active Substance: INDAPAMIDE
     Dosage: UNK
     Route: 065
  9. SOMAC [Suspect]
     Active Substance: PANTOPRAZOLE SODIUM
     Dosage: 40 MILLIGRAM
     Route: 048
  10. FERROGRAD C [Suspect]
     Active Substance: ASCORBIC ACID\FERROUS SULFATE
     Dosage: UNK
     Route: 065
  11. MAGMIN [Suspect]
     Active Substance: MAGNESIUM ASPARTATE
     Dosage: UNK
     Route: 065
  12. MINIPRESS [Suspect]
     Active Substance: PRAZOSIN HYDROCHLORIDE
     Dosage: 5 MILLIGRAM
     Route: 048
  13. COLOXYL WITH SENNA [Suspect]
     Active Substance: DOCUSATE SODIUM\SENNOSIDES A AND B
     Dosage: UNK
     Route: 065

REACTIONS (3)
  - Vertigo [Unknown]
  - Tremor [Unknown]
  - Accidental exposure to product [Unknown]
